FAERS Safety Report 7940930-7 (Version None)
Quarter: 2011Q4

REPORT INFORMATION
  Report Type: 
  Country: None (occurrence: None)
  Receive Date: 20111114
  Receipt Date: 20111011
  Transmission Date: 20120403
  Serious: Yes (Other)
  Sender: FDA-Public Use
  Company Number: 1000024714

PATIENT
  Sex: Female
  Weight: 62.6 kg

DRUGS (4)
  1. SAVELLA [Suspect]
     Indication: ARTHRALGIA
     Dosage: 12.5 MILLIGRAM, 25 MILLIGRAM (2 IN 1 D)
     Dates: start: 20110501, end: 20110501
  2. SAVELLA [Suspect]
     Indication: ARTHRALGIA
     Dosage: 12.5 MILLIGRAM, 25 MILLIGRAM (2 IN 1 D)
     Dates: start: 20110501, end: 20110501
  3. SAVELLA [Suspect]
     Indication: ARTHRALGIA
     Dosage: 50 MILLIGRAM (2 IN 1 D)
     Dates: start: 20110501, end: 20110527
  4. SAVELLA [Suspect]
     Indication: ARTHRALGIA
     Dates: start: 20110609, end: 20110615

REACTIONS (1)
  - PRURITUS [None]
